FAERS Safety Report 19880199 (Version 7)
Quarter: 2022Q1

REPORT INFORMATION
  Report Type: Spontaneous
  Country: CA (occurrence: CA)
  Receive Date: 20210925
  Receipt Date: 20220324
  Transmission Date: 20220424
  Serious: Yes (Other)
  Sender: FDA-Public Use
  Company Number: CA-CELLTRION INC.-2021CA010791

PATIENT

DRUGS (8)
  1. INFLECTRA [Suspect]
     Active Substance: INFLIXIMAB-DYYB
     Indication: Crohn^s disease
     Dosage: 10 MG/KG, WEEK 0, 1 AND 5 AND THEN EVERY 8 WEEKS
     Route: 042
     Dates: start: 20210624
  2. INFLECTRA [Suspect]
     Active Substance: INFLIXIMAB-DYYB
     Dosage: 10 MG/KG, WEEK 0, 1 AND 5 AND THEN EVERY 8 WEEKS
     Route: 042
     Dates: start: 20210701
  3. INFLECTRA [Suspect]
     Active Substance: INFLIXIMAB-DYYB
     Dosage: 10 MG/KG, WEEK 0, 1 AND 5 AND THEN EVERY 8 WEEKS
     Dates: start: 20210729
  4. INFLECTRA [Suspect]
     Active Substance: INFLIXIMAB-DYYB
     Dosage: 10 MG/KG, WEEK 0, 1 AND 5 AND THEN EVERY 8 WEEKS
     Route: 042
     Dates: start: 20210922
  5. INFLECTRA [Suspect]
     Active Substance: INFLIXIMAB-DYYB
     Dosage: 10 MG/KG, WEEK 0, 1 AND 5 AND THEN EVERY 8 WEEKS
     Route: 042
     Dates: start: 20211116
  6. INFLECTRA [Suspect]
     Active Substance: INFLIXIMAB-DYYB
     Dosage: 10 MG/KG, WEEK 0, 1 AND 5 AND THEN EVERY 8 WEEKS
     Route: 042
     Dates: start: 20220112
  7. INFLECTRA [Suspect]
     Active Substance: INFLIXIMAB-DYYB
     Dosage: 10 MG/KG, WEEK 0, 1 AND 5 AND THEN EVERY 8 WEEKS
     Route: 042
     Dates: start: 20220309
  8. SOLU-MEDROL [Concomitant]
     Active Substance: METHYLPREDNISOLONE SODIUM SUCCINATE
     Dosage: 1 DF, DOSAGE NOT AVAILABLE
     Route: 065

REACTIONS (6)
  - Alopecia [Not Recovered/Not Resolved]
  - Weight increased [Unknown]
  - Hypertension [Not Recovered/Not Resolved]
  - Off label use [Unknown]
  - Off label use [Unknown]
  - Increased appetite [Unknown]

NARRATIVE: CASE EVENT DATE: 20210624
